FAERS Safety Report 17447896 (Version 1)
Quarter: 2020Q1

REPORT INFORMATION
  Report Type: Spontaneous
  Country: US (occurrence: US)
  Receive Date: 20200222
  Receipt Date: 20200222
  Transmission Date: 20200409
  Serious: Yes (Hospitalization, Other)
  Sender: FDA-Public Use
  Company Number: US-ROCHE-2554678

PATIENT
  Sex: Female
  Weight: 52.66 kg

DRUGS (3)
  1. ARAVA [Concomitant]
     Active Substance: LEFLUNOMIDE
  2. PREDNISONE. [Concomitant]
     Active Substance: PREDNISONE
     Route: 048
  3. ACTEMRA [Suspect]
     Active Substance: TOCILIZUMAB
     Indication: RHEUMATOID ARTHRITIS
     Route: 058
     Dates: start: 20180101

REACTIONS (6)
  - Fall [Recovered/Resolved]
  - Arthritis [Not Recovered/Not Resolved]
  - Syncope [Recovered/Resolved]
  - Upper limb fracture [Not Recovered/Not Resolved]
  - Lumbar vertebral fracture [Recovered/Resolved]
  - Asthma [Unknown]

NARRATIVE: CASE EVENT DATE: 2019
